FAERS Safety Report 6309438-9 (Version None)
Quarter: 2009Q3

REPORT INFORMATION
  Report Type: 
  Country: None (occurrence: None)
  Receive Date: 20090811
  Receipt Date: 20090528
  Transmission Date: 20100115
  Serious: No
  Sender: FDA-Public Use
  Company Number: 1000006513

PATIENT
  Age: 58 Year
  Sex: Female

DRUGS (9)
  1. SAVELLA [Suspect]
     Indication: FIBROMYALGIA
     Dosage: SEE IMAGE
     Route: 048
     Dates: start: 20090509, end: 20090509
  2. SAVELLA [Suspect]
     Indication: FIBROMYALGIA
     Dosage: SEE IMAGE
     Route: 048
     Dates: start: 20090510, end: 20090511
  3. SAVELLA [Suspect]
     Indication: FIBROMYALGIA
     Dosage: SEE IMAGE
     Route: 048
     Dates: start: 20090512, end: 20090515
  4. SAVELLA [Suspect]
     Indication: FIBROMYALGIA
     Dosage: SEE IMAGE
     Route: 048
     Dates: start: 20090516
  5. THYROID MEDICATION (NOS) [Concomitant]
  6. ACIPHEX [Concomitant]
  7. PAIN MEDICATION (NOS) [Concomitant]
  8. PERCOCET [Concomitant]
  9. ELAVIL [Concomitant]

REACTIONS (8)
  - AMNESIA [None]
  - BLOOD PRESSURE INCREASED [None]
  - CONFUSIONAL STATE [None]
  - HEART RATE INCREASED [None]
  - HYPERHIDROSIS [None]
  - PERIORBITAL HAEMATOMA [None]
  - SOMNOLENCE [None]
  - TEMPERATURE INTOLERANCE [None]
